FAERS Safety Report 4386739-5 (Version None)
Quarter: 2004Q2

REPORT INFORMATION
  Report Type: 
  Country: None (occurrence: None)
  Receive Date: 20040629
  Receipt Date: 20040623
  Transmission Date: 20050107
  Serious: Yes (Life-Threatening, Hospitalization, Disabling)
  Sender: FDA-Public Use
  Company Number: GB-MERCK-0406GBR00206

PATIENT
  Age: 70 Year
  Sex: Female

DRUGS (3)
  1. BENDROFLUMETHIAZIDE [Concomitant]
     Route: 048
     Dates: start: 20040101
  2. COZAAR [Suspect]
     Indication: HYPERTENSION
     Route: 048
     Dates: start: 20031203, end: 20040608
  3. WARFARIN [Concomitant]
     Route: 048
     Dates: start: 20010801

REACTIONS (1)
  - PULMONARY FIBROSIS [None]
